FAERS Safety Report 18439148 (Version 6)
Quarter: 2021Q1

REPORT INFORMATION
  Report Type: Report from Study
  Country: BR (occurrence: BR)
  Receive Date: 20201028
  Receipt Date: 20210218
  Transmission Date: 20210419
  Serious: Yes (Death, Life-Threatening, Other)
  Sender: FDA-Public Use
  Company Number: BR-GILEAD-2020-0495975

PATIENT
  Age: 20 Year
  Sex: Male
  Weight: 62 kg

DRUGS (124)
  1. CEFTRIAXONE. [Concomitant]
     Active Substance: CEFTRIAXONE
     Indication: ANTIBIOTIC PROPHYLAXIS
     Dosage: 2 G
     Dates: start: 20200902, end: 20200909
  2. ENOXAPARIN [Concomitant]
     Active Substance: ENOXAPARIN
     Dosage: 40 MG
     Dates: start: 20200902, end: 20200907
  3. DEXAMETHASONE. [Concomitant]
     Active Substance: DEXAMETHASONE
     Indication: COVID-19 PNEUMONIA
     Dosage: 6 MG, QD
  4. DIPYRONE [Concomitant]
     Active Substance: DIPYRONE
     Dosage: 500 MG
     Dates: start: 20200913, end: 20200913
  5. HALDOL [Concomitant]
     Active Substance: HALOPERIDOL
  6. MORPHINE [Concomitant]
     Active Substance: MORPHINE
     Dosage: 1 MG
     Dates: start: 20200921, end: 20200921
  7. SCOPOLAMINE [HYOSCINE] [Concomitant]
     Active Substance: SCOPOLAMINE
  8. OXYGEN. [Concomitant]
     Active Substance: OXYGEN
     Dosage: SUBSEQUENT DOSES ON 06/SEP/2020, 08/SEP/2020
     Route: 007
     Dates: start: 20200907
  9. OXYGEN. [Concomitant]
     Active Substance: OXYGEN
     Dosage: 15 L/MIN
     Route: 055
     Dates: start: 20200922
  10. OXYGEN. [Concomitant]
     Active Substance: OXYGEN
     Dosage: 12 L/MIN SUBSEQUENT DOSES ON 16/SEP/2020
     Route: 055
     Dates: start: 20200915
  11. OXYGEN. [Concomitant]
     Active Substance: OXYGEN
     Dosage: SUBSEQUENT DOSES ON 03/SEP/2020
     Route: 007
     Dates: start: 20200922
  12. OXYGEN. [Concomitant]
     Active Substance: OXYGEN
     Dosage: 7 L/MIN ON 02/SEP/2020
     Route: 055
     Dates: start: 20200914
  13. OXYGEN. [Concomitant]
     Active Substance: OXYGEN
     Dosage: 30 %
     Route: 007
     Dates: start: 20200908
  14. OXYGEN. [Concomitant]
     Active Substance: OXYGEN
     Dosage: 10 L/MIN
     Route: 055
     Dates: start: 20200910
  15. NORADRENALINE [Concomitant]
     Active Substance: NOREPINEPHRINE
     Dosage: 20 ML
     Dates: start: 20200916, end: 20200916
  16. AZITHROMYCIN ANHYDROUS. [Concomitant]
     Active Substance: AZITHROMYCIN ANHYDROUS
     Indication: INFECTION PROPHYLAXIS
     Dosage: 500 MG, QD
  17. AZITHROMYCIN ANHYDROUS. [Concomitant]
     Active Substance: AZITHROMYCIN ANHYDROUS
     Indication: ANTIBIOTIC PROPHYLAXIS
     Dosage: 500 MG
     Dates: start: 20200902, end: 20200902
  18. DEXAMETHASONE. [Concomitant]
     Active Substance: DEXAMETHASONE
     Indication: COVID-19 PNEUMONIA
     Dosage: 6 MG
     Dates: start: 20200902, end: 20200904
  19. DEXTROKETAMINE [Concomitant]
     Dosage: 50 MG
     Dates: start: 20200913, end: 20200913
  20. LINEZOLID. [Concomitant]
     Active Substance: LINEZOLID
     Indication: BACTERIAL INFECTION
     Dosage: 600 MG
     Dates: start: 20200922, end: 20200922
  21. OXYGEN. [Concomitant]
     Active Substance: OXYGEN
     Dosage: 11 L/MIN
     Route: 055
     Dates: start: 20200914
  22. OXYGEN. [Concomitant]
     Active Substance: OXYGEN
     Dosage: 15 L/MIN
     Route: 055
     Dates: start: 20200911
  23. OXYGEN. [Concomitant]
     Active Substance: OXYGEN
     Dosage: 30 %
     Route: 007
     Dates: start: 20200905
  24. OXYGEN. [Concomitant]
     Active Substance: OXYGEN
     Dosage: 10 L/MIN
     Route: 055
     Dates: start: 20200912
  25. OXYGEN. [Concomitant]
     Active Substance: OXYGEN
     Dosage: 10 L/MIN
     Route: 055
     Dates: start: 20200913
  26. DORMONID [Concomitant]
     Active Substance: MIDAZOLAM MALEATE
     Dosage: 100 MG
     Dates: start: 20200922, end: 20200922
  27. AZITHROMYCIN ANHYDROUS. [Concomitant]
     Active Substance: AZITHROMYCIN ANHYDROUS
     Dosage: 500 MG
     Dates: start: 20200908, end: 20200908
  28. DIPYRONE [Concomitant]
     Active Substance: DIPYRONE
     Dosage: 500 MG
     Dates: start: 20200911, end: 20200911
  29. SUCCINYLCHOLINE [SUXAMETHONIUM] [Concomitant]
     Active Substance: SUCCINYLCHOLINE
  30. MORPHINE [Concomitant]
     Active Substance: MORPHINE
     Indication: DYSPNOEA
     Dosage: 1 MG
     Dates: start: 20200915, end: 20200916
  31. CIMETIDINE [Concomitant]
     Active Substance: CIMETIDINE
     Dosage: 300 MG
     Dates: start: 20200917, end: 20200923
  32. OXYGEN. [Concomitant]
     Active Substance: OXYGEN
     Dosage: 50 %
     Route: 007
     Dates: start: 20200905
  33. OXYGEN. [Concomitant]
     Active Substance: OXYGEN
     Dosage: 14 L/MIN
     Route: 055
     Dates: start: 20200912
  34. OXYGEN. [Concomitant]
     Active Substance: OXYGEN
     Dosage: 8 L/MIN
     Route: 055
     Dates: start: 20200922
  35. OXYGEN. [Concomitant]
     Active Substance: OXYGEN
     Dosage: 4 L/MIN
     Route: 055
     Dates: start: 20200918
  36. OXYGEN. [Concomitant]
     Active Substance: OXYGEN
     Dosage: 12 L/MIN
     Route: 055
     Dates: start: 20200921
  37. OXYGEN. [Concomitant]
     Active Substance: OXYGEN
     Dosage: 10 L/MIN
     Route: 055
     Dates: start: 20200916
  38. OXYGEN. [Concomitant]
     Active Substance: OXYGEN
     Dosage: 30 %
     Route: 007
     Dates: start: 20200907
  39. INSULIN REGULAR [Concomitant]
     Active Substance: INSULIN NOS
     Dosage: 5 IU
     Dates: start: 20200904, end: 20200904
  40. INSULIN REGULAR [Concomitant]
     Active Substance: INSULIN NOS
     Dosage: 5 IU
     Dates: start: 20200911, end: 20200911
  41. INSULIN REGULAR [Concomitant]
     Active Substance: INSULIN NOS
     Dosage: 20 IU
     Dates: start: 20200905, end: 20200910
  42. TOCILIZUMAB. [Suspect]
     Active Substance: TOCILIZUMAB
     Indication: COVID-19 PNEUMONIA
     Dosage: UNK
     Route: 042
     Dates: start: 20200902
  43. DIPYRONE [Concomitant]
     Active Substance: DIPYRONE
     Indication: COVID-19
     Dosage: 500 MG, QD
  44. FENTANYL. [Concomitant]
     Active Substance: FENTANYL
     Dosage: 20 ML
     Dates: start: 20200922, end: 20200922
  45. ROCURONIUM [Concomitant]
     Active Substance: ROCURONIUM BROMIDE
     Indication: SEDATION
     Dosage: 40 MG
     Dates: start: 20200904, end: 20200906
  46. NORADRENALINE (NORPINEPHRINE) [Concomitant]
     Active Substance: NOREPINEPHRINE
     Indication: HYPOTENSION
  47. METHYLPREDNISOLONE. [Concomitant]
     Active Substance: METHYLPREDNISOLONE
     Indication: COVID-19 PNEUMONIA
     Dosage: 40 MG
     Dates: start: 20200905, end: 20200908
  48. THIAMINE. [Concomitant]
     Active Substance: THIAMINE
     Dosage: 300 MG
     Dates: start: 20200915, end: 20200922
  49. VANCOMYCIN [Concomitant]
     Active Substance: VANCOMYCIN
  50. OXYGEN. [Concomitant]
     Active Substance: OXYGEN
     Dosage: 5 L/MIN
     Route: 055
     Dates: start: 20200917
  51. OXYGEN. [Concomitant]
     Active Substance: OXYGEN
     Dosage: 10 L/MIN SUBSEQUENT DOSES ON 16/SEP/2020, 12/SEP/2020, 10/SEP/2020
     Route: 055
     Dates: start: 20200913
  52. OXYGEN. [Concomitant]
     Active Substance: OXYGEN
     Dosage: 3 L/MIN
     Route: 055
     Dates: start: 20200918
  53. OXYGEN. [Concomitant]
     Active Substance: OXYGEN
     Dosage: 7 L/MIN
     Route: 055
     Dates: start: 20200902
  54. SUCCINYLCHOLINE [Concomitant]
     Active Substance: SUCCINYLCHOLINE
     Indication: NEUROMUSCULAR BLOCKADE
     Dosage: 100 MG
     Dates: start: 20200903, end: 20200903
  55. ENOXAPARIN [Concomitant]
     Active Substance: ENOXAPARIN
     Indication: THROMBOSIS PROPHYLAXIS
     Dosage: 40 MG, QD
  56. AZITHROMYCIN ANHYDROUS. [Concomitant]
     Active Substance: AZITHROMYCIN ANHYDROUS
     Dosage: 500 MG
     Dates: start: 20200904, end: 20200906
  57. DEXAMETHASONE. [Concomitant]
     Active Substance: DEXAMETHASONE
     Dosage: 2 MG
     Dates: start: 20200902, end: 20200902
  58. DIPYRONE [Concomitant]
     Active Substance: DIPYRONE
     Dosage: 500 MG
     Dates: start: 20200919, end: 20200922
  59. PRECEDEX [Concomitant]
     Active Substance: DEXMEDETOMIDINE HYDROCHLORIDE
     Indication: ANXIETY
     Dosage: 100 UG
     Dates: start: 20200908, end: 20200914
  60. LIDOCAINE. [Concomitant]
     Active Substance: LIDOCAINE
     Dosage: 6 ML
     Dates: start: 20200903, end: 20200903
  61. ROCURONIUM [Concomitant]
     Active Substance: ROCURONIUM BROMIDE
     Dosage: 10 MG
     Dates: start: 20200922, end: 20200922
  62. OXYGEN. [Concomitant]
     Active Substance: OXYGEN
     Dosage: 8 L/MIN
     Route: 055
     Dates: start: 20200917
  63. OXYGEN. [Concomitant]
     Active Substance: OXYGEN
     Dosage: 40 %
     Route: 007
     Dates: start: 20200909
  64. OXYGEN. [Concomitant]
     Active Substance: OXYGEN
     Dosage: 4 L/MIN SUBSEQUENT DOSES ON 21/SEP/2020, 10/SEP/2020, 20/SEP/2020
     Route: 055
     Dates: start: 20200919
  65. OXYGEN. [Concomitant]
     Active Substance: OXYGEN
     Dosage: 8 L/MIN
     Route: 055
     Dates: start: 20200902
  66. OXYGEN. [Concomitant]
     Active Substance: OXYGEN
     Dosage: 30 %
     Route: 007
     Dates: start: 20200906
  67. OXYGEN. [Concomitant]
     Active Substance: OXYGEN
     Dosage: 15 L/MIN
     Route: 055
     Dates: start: 20200911
  68. NORADRENALINE [Concomitant]
     Active Substance: NOREPINEPHRINE
     Dosage: 20 ML
     Dates: start: 20200914, end: 20200914
  69. HALDOL [Concomitant]
     Active Substance: HALOPERIDOL
     Dosage: 5 MG
     Dates: start: 20200906, end: 20200906
  70. HALDOL [Concomitant]
     Active Substance: HALOPERIDOL
     Dosage: 5 ML
     Dates: start: 20200910, end: 20200910
  71. OMEPRAZOLE. [Concomitant]
     Active Substance: OMEPRAZOLE
     Dosage: 40 MG, QD
     Dates: start: 20200906, end: 20200906
  72. ENOXAPARIN [Concomitant]
     Active Substance: ENOXAPARIN
     Dosage: 40 MG
     Dates: start: 20200909, end: 20200922
  73. CODEINE [Concomitant]
     Active Substance: CODEINE
     Indication: COVID-19
     Dosage: 5 ML
     Dates: start: 20200902, end: 20200903
  74. PRECEDEX [Concomitant]
     Active Substance: DEXMEDETOMIDINE HYDROCHLORIDE
     Dosage: 100 UG
     Dates: start: 20200902, end: 20200902
  75. DEXTROKETAMINE [Concomitant]
     Indication: SEDATION
     Dosage: 50 MG
     Dates: start: 20200903, end: 20200903
  76. FENTANYL. [Concomitant]
     Active Substance: FENTANYL
     Indication: SEDATION
     Dosage: 20 ML
     Dates: start: 20200903, end: 20200908
  77. PROPOFOL. [Concomitant]
     Active Substance: PROPOFOL
     Dosage: 600 MG
     Dates: start: 20200906, end: 20200906
  78. PROPOFOL. [Concomitant]
     Active Substance: PROPOFOL
     Dosage: 600 MG
     Dates: start: 20200908, end: 20200908
  79. OXYGEN. [Concomitant]
     Active Substance: OXYGEN
     Dosage: 65 %
     Route: 007
     Dates: start: 20200904
  80. OXYGEN. [Concomitant]
     Active Substance: OXYGEN
     Dosage: 50 %
     Route: 007
     Dates: start: 20200904
  81. OXYGEN. [Concomitant]
     Active Substance: OXYGEN
     Dosage: 4 L/MIN
     Route: 055
     Dates: start: 20200920
  82. OXYGEN. [Concomitant]
     Active Substance: OXYGEN
     Dosage: 100 %
     Route: 007
     Dates: start: 20200922
  83. OXYGEN. [Concomitant]
     Active Substance: OXYGEN
     Dosage: 100 %
     Route: 007
     Dates: start: 20200903
  84. NORADRENALINE [Concomitant]
     Active Substance: NOREPINEPHRINE
     Dosage: 20 ML
     Dates: start: 20200921, end: 20200922
  85. INSULIN REGULAR [Concomitant]
     Active Substance: INSULIN NOS
     Dosage: 5 IU
     Dates: start: 20200909, end: 20200909
  86. INSULIN REGULAR [Concomitant]
     Active Substance: INSULIN NOS
     Dosage: 20 IU
     Dates: start: 20200914, end: 20200922
  87. REMDESIVIR. [Suspect]
     Active Substance: REMDESIVIR
     Indication: COVID-19 PNEUMONIA
     Dosage: 100 ML, QD
     Route: 042
     Dates: start: 20200902
  88. OMEPRAZOLE. [Concomitant]
     Active Substance: OMEPRAZOLE
     Indication: PROPHYLAXIS AGAINST GASTROINTESTINAL ULCER
     Dates: start: 20200902, end: 20200904
  89. CEFTRIAXONE. [Concomitant]
     Active Substance: CEFTRIAXONE
     Indication: INFECTION PROPHYLAXIS
     Dosage: 2 G, QD
     Route: 065
  90. CODEINE [Concomitant]
     Active Substance: CODEINE
     Indication: COUGH
     Dosage: 5 ML, QD
  91. DIPYRONE [Concomitant]
     Active Substance: DIPYRONE
     Dosage: 500 MG
     Dates: start: 20200908, end: 20200908
  92. PRECEDEX [Concomitant]
     Active Substance: DEXMEDETOMIDINE HYDROCHLORIDE
     Dosage: 100 UG
     Dates: start: 20200916, end: 20200922
  93. LIDOCAINE. [Concomitant]
     Active Substance: LIDOCAINE
     Dosage: 5 ML
     Dates: start: 20200922, end: 20200922
  94. QUETIAPINE. [Concomitant]
     Active Substance: QUETIAPINE
     Dosage: 100 MG
     Dates: start: 20200913, end: 20200922
  95. QUETIAPINE. [Concomitant]
     Active Substance: QUETIAPINE
     Dosage: 25 MG
     Dates: start: 20200906, end: 20200908
  96. METHYLPREDNISOLONE. [Concomitant]
     Active Substance: METHYLPREDNISOLONE
     Dosage: 40 MG
     Dates: start: 20200910, end: 20200922
  97. OXYGEN. [Concomitant]
     Active Substance: OXYGEN
     Dosage: 9 L/MIN
     Route: 055
     Dates: start: 20200902
  98. OXYGEN. [Concomitant]
     Active Substance: OXYGEN
     Dosage: 7 L/MIN SUBSEQUENT DOSES ON 20/SEP/2020
     Route: 055
     Dates: start: 20200915
  99. OXYGEN. [Concomitant]
     Active Substance: OXYGEN
     Dosage: 4 L/MIN
     Route: 055
     Dates: start: 20200921
  100. OXYGEN. [Concomitant]
     Active Substance: OXYGEN
     Dosage: 7 L/MIN
     Route: 055
     Dates: start: 20200920
  101. OXYGEN. [Concomitant]
     Active Substance: OXYGEN
     Dosage: 4 L/MIN
     Route: 055
     Dates: start: 20200910
  102. OXYGEN. [Concomitant]
     Active Substance: OXYGEN
     Dosage: 30 %
     Route: 007
     Dates: start: 20200908
  103. OXYGEN. [Concomitant]
     Active Substance: OXYGEN
     Dosage: 12 L/MIN
     Route: 055
     Dates: start: 20200916
  104. OXYGEN. [Concomitant]
     Active Substance: OXYGEN
     Dosage: 5 L/MIN
     Route: 055
     Dates: start: 20200909
  105. NORADRENALINE [Concomitant]
     Active Substance: NOREPINEPHRINE
     Indication: COVID-19
     Dosage: 20 ML
     Dates: start: 20200903, end: 20200908
  106. DORMONID [Concomitant]
     Active Substance: MIDAZOLAM MALEATE
     Indication: SEDATION
     Dosage: 100 MG
     Dates: start: 20200903, end: 20200908
  107. TOCILIZUMAB. [Suspect]
     Active Substance: TOCILIZUMAB
     Dosage: UNK
     Route: 042
  108. OMEPRAZOLE. [Concomitant]
     Active Substance: OMEPRAZOLE
     Dosage: 40 UNK
     Dates: start: 20200908, end: 20200916
  109. DIPYRONE [Concomitant]
     Active Substance: DIPYRONE
     Dosage: 500 MG
     Dates: start: 20200915, end: 20200917
  110. BROMOPRIDE [Concomitant]
     Active Substance: BROMOPRIDE
     Dosage: 10 MG, QD
  111. BROMOPRIDE [Concomitant]
     Active Substance: BROMOPRIDE
     Dosage: 10 MG
     Dates: start: 20200902, end: 20200922
  112. DEXTROKETAMINE [Concomitant]
     Dosage: 50 MG
     Dates: start: 20200922, end: 20200922
  113. INSULIN [Concomitant]
     Active Substance: INSULIN NOS
     Indication: HYPERGLYCAEMIA
  114. QUETIAPINE. [Concomitant]
     Active Substance: QUETIAPINE
     Dosage: 50 MG
     Dates: start: 20200909, end: 20200913
  115. METHADONE [Concomitant]
     Active Substance: METHADONE HYDROCHLORIDE
     Indication: COVID-19
     Dosage: 5 MG
     Dates: start: 20200908, end: 20200913
  116. DORMONID [MIDAZOLAM] [Concomitant]
  117. LACTATED RINGERS SOLUTION [Concomitant]
     Active Substance: CALCIUM CHLORIDE\POTASSIUM CHLORIDE\SODIUM CHLORIDE\SODIUM LACTATE
     Dosage: 500 ML
     Dates: start: 20200913, end: 20200914
  118. ENCRISE [Concomitant]
     Dosage: 1 AMPULE
     Dates: start: 20200922, end: 20200922
  119. ADRENALINE [EPINEPHRINE] [Concomitant]
     Active Substance: EPINEPHRINE
  120. OXYGEN. [Concomitant]
     Active Substance: OXYGEN
     Dosage: 10 L/MIN
     Route: 055
     Dates: start: 20200903
  121. OXYGEN. [Concomitant]
     Active Substance: OXYGEN
     Dosage: 12 L/MIN
     Route: 055
     Dates: start: 20200911
  122. OXYGEN. [Concomitant]
     Active Substance: OXYGEN
     Dosage: 9 L/MIN
     Route: 055
     Dates: start: 20200902
  123. OXYGEN. [Concomitant]
     Active Substance: OXYGEN
     Dosage: 5 L/MIN
     Route: 055
     Dates: start: 20200909
  124. SCOPOLAMINE [Concomitant]
     Active Substance: SCOPOLAMINE
     Dosage: .25 MG
     Dates: start: 20200911, end: 20200916

REACTIONS (3)
  - Pneumonia [Not Recovered/Not Resolved]
  - Septic shock [Fatal]
  - Pneumothorax [Not Recovered/Not Resolved]

NARRATIVE: CASE EVENT DATE: 20200916
